FAERS Safety Report 21498074 (Version 1)
Quarter: 2022Q4

REPORT INFORMATION
  Report Type: Spontaneous
  Country: CN (occurrence: CN)
  Receive Date: 20221024
  Receipt Date: 20221024
  Transmission Date: 20230113
  Serious: Yes (Other)
  Sender: FDA-Public Use
  Company Number: None

PATIENT
  Age: 61 Year
  Sex: Female
  Weight: 40 kg

DRUGS (7)
  1. CYCLOPHOSPHAMIDE [Suspect]
     Active Substance: CYCLOPHOSPHAMIDE
     Indication: Chemotherapy
     Dosage: 750 MG, QD, (DILUTED WITH 40 ML SODIUM CHLORIDE INJECTION)
     Route: 042
     Dates: start: 20220629, end: 20220629
  2. CYCLOPHOSPHAMIDE [Suspect]
     Active Substance: CYCLOPHOSPHAMIDE
     Indication: Breast cancer female
  3. SODIUM CHLORIDE [Suspect]
     Active Substance: SODIUM CHLORIDE
     Indication: Medication dilution
     Dosage: 40 ML, QD USED TO DILUTE 750 MG CYCLOPHOSPHAMIDE INJECTION
     Route: 042
     Dates: start: 20220629, end: 20220629
  4. SODIUM CHLORIDE [Suspect]
     Active Substance: SODIUM CHLORIDE
     Dosage: 250 ML, QD USED TO DILUTE 95 MG DOCETAXEL INJECTION
     Route: 041
     Dates: start: 20220629, end: 20220629
  5. DOCETAXEL [Suspect]
     Active Substance: DOCETAXEL
     Indication: Chemotherapy
     Dosage: 95 MG, QD, (DILUTED WITH 250 ML SODIUM CHLORIDE)
     Route: 041
     Dates: start: 20220629, end: 20220629
  6. DOCETAXEL [Suspect]
     Active Substance: DOCETAXEL
     Indication: Breast cancer female
  7. GRANULOCYTE-MACROPHAGE COLONY-STIMULATING FACTOR [Concomitant]
     Active Substance: GRANULOCYTE-MACROPHAGE COLONY-STIMULATING FACTOR
     Indication: Product used for unknown indication
     Dosage: 3 MG ON THE SECOND DAY
     Route: 058
     Dates: start: 20220630

REACTIONS (2)
  - Agranulocytosis [Recovered/Resolved]
  - White blood cell count decreased [Recovered/Resolved]

NARRATIVE: CASE EVENT DATE: 20220705
